FAERS Safety Report 10046842 (Version 2)
Quarter: 2014Q2

REPORT INFORMATION
  Report Type: Spontaneous
  Country: ES (occurrence: ES)
  Receive Date: 20140331
  Receipt Date: 20140619
  Transmission Date: 20141212
  Serious: Yes (Other)
  Sender: FDA-Public Use
  Company Number: ES-ELI_LILLY_AND_COMPANY-ES201403006046

PATIENT
  Age: 49 Year
  Sex: Female

DRUGS (3)
  1. ZYPADHERA [Suspect]
     Indication: SCHIZOPHRENIA, PARANOID TYPE
     Dosage: 300 MG, 2/M
     Route: 030
     Dates: end: 20140214
  2. TRANXILIUM [Concomitant]
     Indication: PRODUCT USED FOR UNKNOWN INDICATION
     Dosage: UNK, QD
     Route: 065
  3. LORMETAZEPAM [Concomitant]
     Indication: INSOMNIA
     Dosage: 2 MG, EACH EVENING
     Route: 065

REACTIONS (2)
  - Cellulitis [Recovered/Resolved]
  - Thrombophlebitis superficial [Recovered/Resolved]
